FAERS Safety Report 12747527 (Version 1)
Quarter: 2016Q3

REPORT INFORMATION
  Report Type: Spontaneous
  Country: US (occurrence: US)
  Receive Date: 20160915
  Receipt Date: 20160915
  Transmission Date: 20161109
  Serious: No
  Sender: FDA-Public Use
  Company Number: US-JAZZ-2016-US-009829

PATIENT
  Sex: Male

DRUGS (29)
  1. XYREM [Suspect]
     Active Substance: SODIUM OXYBATE
     Dosage: 6 G, FIRST DOSE
     Route: 048
     Dates: start: 201405
  2. DOCUSATE SODIUM. [Concomitant]
     Active Substance: DOCUSATE SODIUM
  3. LANTUS [Concomitant]
     Active Substance: INSULIN GLARGINE
  4. PRISTIQ EXTENDED-RELEASE [Concomitant]
     Active Substance: DESVENLAFAXINE SUCCINATE
  5. VITAMIN D3 [Concomitant]
     Active Substance: CHOLECALCIFEROL
  6. FUROSEMIDE. [Concomitant]
     Active Substance: FUROSEMIDE
  7. PANTOPRAZOLE [Concomitant]
     Active Substance: PANTOPRAZOLE SODIUM
  8. SIMVASTATIN. [Concomitant]
     Active Substance: SIMVASTATIN
  9. ALBUTEROL. [Concomitant]
     Active Substance: ALBUTEROL
  10. KLOR-CON [Concomitant]
     Active Substance: POTASSIUM CHLORIDE
  11. NEXIUM [Concomitant]
     Active Substance: ESOMEPRAZOLE MAGNESIUM
  12. NOVOLOG [Concomitant]
     Active Substance: INSULIN ASPART
  13. SENNA [Concomitant]
     Active Substance: SENNA LEAF\SENNOSIDES\SENNOSIDES A AND B
  14. SUCRALFATE. [Concomitant]
     Active Substance: SUCRALFATE
  15. ZYFLO CR [Concomitant]
     Active Substance: ZILEUTON
  16. JANUMET XR [Concomitant]
     Active Substance: METFORMIN HYDROCHLORIDE\SITAGLIPTIN PHOSPHATE
  17. PSYLLIUM HUSK [Concomitant]
     Active Substance: PSYLLIUM HUSK
  18. XYREM [Suspect]
     Active Substance: SODIUM OXYBATE
     Dosage: 4.5 G, SECOND DOSE
     Route: 048
     Dates: start: 201405
  19. NORVASC [Concomitant]
     Active Substance: AMLODIPINE BESYLATE
  20. MUCINEX ER [Concomitant]
  21. XYREM [Suspect]
     Active Substance: SODIUM OXYBATE
     Indication: NARCOLEPSY
     Dosage: 4.5 G, BID
     Route: 048
     Dates: start: 200910, end: 201003
  22. AUGMENTIN [Concomitant]
     Active Substance: AMOXICILLIN\CLAVULANATE POTASSIUM
  23. ASMANEX [Concomitant]
     Active Substance: MOMETASONE FUROATE
  24. LYRICA [Concomitant]
     Active Substance: PREGABALIN
  25. XYREM [Suspect]
     Active Substance: SODIUM OXYBATE
     Dosage: DOSE ADJUSTMENTS
     Route: 048
  26. PERCOCET [Concomitant]
     Active Substance: ACETAMINOPHEN\OXYCODONE HYDROCHLORIDE
  27. PREDNISONE. [Concomitant]
     Active Substance: PREDNISONE
  28. FISH OIL [Concomitant]
     Active Substance: FISH OIL
  29. MECLIZINE [Concomitant]
     Active Substance: MECLIZINE HYDROCHLORIDE

REACTIONS (1)
  - Hospice care [Unknown]
